FAERS Safety Report 13671209 (Version 1)
Quarter: 2017Q2

REPORT INFORMATION
  Report Type: Spontaneous
  Country: US (occurrence: US)
  Receive Date: 20170620
  Receipt Date: 20170620
  Transmission Date: 20170830
  Serious: No
  Sender: FDA-Public Use
  Company Number: US-ROCHE-1383817

PATIENT
  Sex: Female
  Weight: 62.9 kg

DRUGS (2)
  1. XELODA [Suspect]
     Active Substance: CAPECITABINE
     Indication: BREAST CANCER
     Dosage: 1150 MG IN MORNING AND 1650 MG IN EVENING DAILY FOR 14 DAYS EVERY 21 DAYS
     Route: 048
     Dates: start: 20140304
  2. XELODA [Suspect]
     Active Substance: CAPECITABINE
     Dosage: FOR 14 DAYS EVERY 21 DAYS
     Route: 048
     Dates: start: 20140304

REACTIONS (3)
  - Facial spasm [Unknown]
  - Nausea [Unknown]
  - Fatigue [Unknown]
